FAERS Safety Report 7713844-5 (Version None)
Quarter: 2011Q3

REPORT INFORMATION
  Report Type: 
  Country: None (occurrence: None)
  Receive Date: 20110826
  Receipt Date: 20110823
  Transmission Date: 20111222
  Serious: Yes (Hospitalization, Other)
  Sender: FDA-Public Use
  Company Number: BR-ABBOTT-11P-020-0848910-00

PATIENT
  Sex: Female
  Weight: 60 kg

DRUGS (4)
  1. UNSPECIFIED CORTICOID [Concomitant]
     Indication: RHEUMATOID ARTHRITIS
     Route: 048
     Dates: start: 20050101
  2. MELOXICAM [Concomitant]
     Indication: PAIN
     Route: 048
     Dates: start: 20050101
  3. HUMIRA [Suspect]
     Indication: RHEUMATOID ARTHRITIS
     Route: 058
     Dates: start: 20050401, end: 20110122
  4. UNSPECIFIED CORTICOID [Concomitant]
     Indication: PAIN

REACTIONS (6)
  - BLOOD PRESSURE INCREASED [None]
  - CHEST PAIN [None]
  - MALAISE [None]
  - CHOKING [None]
  - BLOOD CHOLESTEROL INCREASED [None]
  - AORTIC OCCLUSION [None]
